FAERS Safety Report 6986067-5 (Version None)
Quarter: 2010Q3

REPORT INFORMATION
  Report Type: 
  Country: None (occurrence: None)
  Receive Date: 20100910
  Receipt Date: 20100820
  Transmission Date: 20110219
  Serious: Yes (Death)
  Sender: FDA-Public Use
  Company Number: JPI-P-004419

PATIENT
  Age: 48 Year
  Sex: Male

DRUGS (2)
  1. XYREM [Suspect]
     Indication: NARCOLEPSY
     Dosage: UNKNOWN, ORAL
     Route: 048
     Dates: start: 20080801, end: 20080801
  2. UNSPECIFIED MEDICATIONS [Concomitant]

REACTIONS (3)
  - ACCIDENTAL OVERDOSE [None]
  - HALLUCINATION [None]
  - RESPIRATORY FAILURE [None]
